FAERS Safety Report 6805199-5 (Version None)
Quarter: 2010Q2

REPORT INFORMATION
  Report Type: 
  Country: None (occurrence: None)
  Receive Date: 20100628
  Receipt Date: 20070925
  Transmission Date: 20101027
  Serious: No
  Sender: FDA-Public Use
  Company Number: US-PFIZER INC-2007080185

PATIENT
  Sex: Female
  Weight: 54.1 kg

DRUGS (4)
  1. XALATAN [Suspect]
     Indication: GLAUCOMA
     Dates: start: 20070301
  2. NORVASC [Concomitant]
  3. AMLODIPINE BESYLATE [Concomitant]
  4. SYNTHROID [Concomitant]

REACTIONS (1)
  - SCAB [None]
